FAERS Safety Report 9127891 (Version 1)
Quarter: 2013Q1

REPORT INFORMATION
  Report Type: Report from Study
  Country: GB (occurrence: GB)
  Receive Date: 20130228
  Receipt Date: 20130228
  Transmission Date: 20140127
  Serious: Yes (Hospitalization)
  Sender: FDA-Public Use
  Company Number: GB-JNJFOC-20130213912

PATIENT
  Age: 74 Year
  Sex: Female

DRUGS (5)
  1. SIMPONI [Suspect]
     Indication: PRODUCT USED FOR UNKNOWN INDICATION
     Route: 058
  2. SIMPONI [Suspect]
     Indication: PRODUCT USED FOR UNKNOWN INDICATION
     Route: 058
     Dates: start: 20130215
  3. ORAMORPH [Concomitant]
  4. CALCICHEW [Concomitant]
  5. PREDNISOLONE [Concomitant]

REACTIONS (1)
  - Gastroenteritis viral [Recovered/Resolved]
